FAERS Safety Report 4627723-3 (Version None)
Quarter: 2005Q2

REPORT INFORMATION
  Report Type: 
  Country: None (occurrence: None)
  Receive Date: 20050401
  Receipt Date: 20050323
  Transmission Date: 20051028
  Serious: Yes (Hospitalization)
  Sender: FDA-Public Use
  Company Number: 141657USA

PATIENT
  Age: 36 Year
  Sex: Male

DRUGS (4)
  1. PIMOZIDE [Suspect]
     Dosage: 2 MILLIGRAM
     Route: 048
     Dates: end: 20020209
  2. NEFAZODONE HCL [Suspect]
  3. VALPROATE SODIUM [Concomitant]
  4. LORAZEPAM [Concomitant]

REACTIONS (13)
  - ANGINA PECTORIS [None]
  - DRUG INTERACTION [None]
  - ELECTROCARDIOGRAM QT PROLONGED [None]
  - ELECTROCARDIOGRAM ST SEGMENT DEPRESSION [None]
  - HEADACHE [None]
  - HYPERHIDROSIS [None]
  - HYPOTENSION [None]
  - LOSS OF CONSCIOUSNESS [None]
  - MALAISE [None]
  - SCHIZOPHRENIA [None]
  - SYNCOPE [None]
  - VERTIGO [None]
  - VOMITING [None]
